FAERS Safety Report 13053999 (Version 1)
Quarter: 2016Q4

REPORT INFORMATION
  Report Type: Spontaneous
  Country: CN (occurrence: CN)
  Receive Date: 20161222
  Receipt Date: 20161222
  Transmission Date: 20170207
  Serious: Yes (Other)
  Sender: FDA-Public Use
  Company Number: ALCN2016CN009458

PATIENT

DRUGS (1)
  1. TRAVATAN APS [Suspect]
     Active Substance: TRAVOPROST
     Indication: ANGLE CLOSURE GLAUCOMA
     Dosage: 1 DRP, QD
     Route: 047

REACTIONS (1)
  - Angina pectoris [Unknown]
